FAERS Safety Report 9331723 (Version 1)
Quarter: 2013Q2

REPORT INFORMATION
  Report Type: Spontaneous
  Country: CN (occurrence: None)
  Receive Date: 20130531
  Receipt Date: 20130531
  Transmission Date: 20140414
  Serious: Yes (Death, Other)
  Sender: FDA-Public Use
  Company Number: 1737769

PATIENT
  Age: 15 Year
  Sex: Male

DRUGS (22)
  1. CYTARABINE [Suspect]
     Indication: ACUTE LYMPHOCYTIC LEUKAEMIA
  2. METHOTREXATE [Suspect]
     Indication: ACUTE LYMPHOCYTIC LEUKAEMIA
     Route: 037
  3. METHOTREXATE [Suspect]
     Route: 037
  4. METHOTREXATE [Suspect]
     Indication: ACUTE LYMPHOCYTIC LEUKAEMIA
     Route: 048
  5. VINCRISTINE [Suspect]
     Indication: ACUTE LYMPHOCYTIC LEUKAEMIA
  6. VINCRISTINE [Suspect]
  7. L-ASPARAGINASE [Suspect]
     Indication: ACUTE LYMPHOCYTIC LEUKAEMIA
     Dosage: 5000 IU MG/M^2/D
  8. L-ASPARAGINASE [Suspect]
     Dosage: 5000 IU MG/M^2/D
  9. CYCLOPHOSPHAMIDE [Suspect]
     Indication: ACUTE LYMPHOCYTIC LEUKAEMIA
  10. MERCAPTOPURINE [Suspect]
     Indication: ACUTE LYMPHOCYTIC LEUKAEMIA
  11. MERCAPTOPURINE [Suspect]
  12. MERCAPTOPURINE [Suspect]
  13. DEXAMETHASONE [Suspect]
     Indication: ACUTE LYMPHOCYTIC LEUKAEMIA
     Route: 048
  14. DEXAMETHASONE [Suspect]
     Route: 048
  15. ADRIAMYCIN /00330901/ [Suspect]
     Indication: ACUTE LYMPHOCYTIC LEUKAEMIA
  16. DAUNORUBICIN [Suspect]
     Indication: ACUTE LYMPHOCYTIC LEUKAEMIA
  17. OTHER CHEMOTHERAPEUTICS (OTHER CHEMOTHERAPEUTICS) [Suspect]
     Indication: ACUTE LYMPHOCYTIC LEUKAEMIA
     Route: 037
  18. OTHER CHEMOTHERAPEUTICS (OTHER CHEMOTHERAPEUTICS) [Suspect]
     Route: 037
  19. PREDNISONE [Suspect]
     Indication: ACUTE LYMPHOCYTIC LEUKAEMIA
     Route: 048
  20. PREDNISONE [Suspect]
     Route: 048
  21. PREDNISONE [Suspect]
     Indication: ACUTE LYMPHOCYTIC LEUKAEMIA
     Route: 048
  22. PREDNISONE [Suspect]
     Indication: ACUTE LYMPHOCYTIC LEUKAEMIA
     Route: 048

REACTIONS (3)
  - Sepsis [None]
  - Bone marrow failure [None]
  - Leukaemia recurrent [None]
